FAERS Safety Report 4639297-1 (Version None)
Quarter: 2005Q2

REPORT INFORMATION
  Report Type: 
  Country: None (occurrence: None)
  Receive Date: 20050419
  Receipt Date: 20050401
  Transmission Date: 20051028
  Serious: Yes (Life-Threatening, Hospitalization)
  Sender: FDA-Public Use
  Company Number: TRP_0086_2005

PATIENT
  Age: 65 Year
  Sex: Female
  Weight: 73.9363 kg

DRUGS (15)
  1. REBETOL [Suspect]
     Indication: HEPATITIS C
     Dosage: 1200 MG QDAY PO
     Route: 048
     Dates: start: 20041001, end: 20050101
  2. PEG-INTRON [Suspect]
     Indication: HEPATITIS C
     Dosage: 120 MCG QWK SC
     Route: 058
     Dates: start: 20041001, end: 20050101
  3. ALBUTEROL SULPHATE [Concomitant]
  4. CARDIZEM [Concomitant]
  5. COMBIVENT [Concomitant]
  6. LASIX [Concomitant]
  7. NITRO-DUR [Concomitant]
  8. NOVOLOG [Concomitant]
  9. PEPCID [Concomitant]
  10. REGLAN [Concomitant]
  11. ULTRAM [Concomitant]
  12. ALBUTEROL [Concomitant]
  13. COMBIVENT AEROSOL SOLUTION [Concomitant]
  14. NITRO-DUR (ORIGINAL, TRANSDERMAL) [Concomitant]
  15. NOVOLOG SOLUTION (INJ) [Concomitant]

REACTIONS (4)
  - BLOOD GLUCOSE INCREASED [None]
  - DRUG HYPERSENSITIVITY [None]
  - LOSS OF CONSCIOUSNESS [None]
  - PULMONARY EMBOLISM [None]
